FAERS Safety Report 6186538-8 (Version None)
Quarter: 2009Q2

REPORT INFORMATION
  Report Type: 
  Country: None (occurrence: None)
  Receive Date: 20090507
  Receipt Date: 20090507
  Transmission Date: 20091009
  Serious: Yes (Other)
  Sender: FDA-Public Use
  Company Number: None

PATIENT
  Age: 55 Year
  Sex: Female
  Weight: 68.9467 kg

DRUGS (1)
  1. AVELOX [Suspect]

REACTIONS (11)
  - AMNESIA [None]
  - AURICULAR SWELLING [None]
  - DISTURBANCE IN ATTENTION [None]
  - EAR PRURITUS [None]
  - FEELING ABNORMAL [None]
  - FEELING DRUNK [None]
  - IMPAIRED WORK ABILITY [None]
  - PAIN OF SKIN [None]
  - PRURITUS [None]
  - SKIN SWELLING [None]
  - SWELLING FACE [None]
